FAERS Safety Report 12613895 (Version 3)
Quarter: 2017Q1

REPORT INFORMATION
  Report Type: Report from Study
  Country: US (occurrence: US)
  Receive Date: 20160802
  Receipt Date: 20170227
  Transmission Date: 20170428
  Serious: No
  Sender: FDA-Public Use
  Company Number: US-PFIZER INC-2016359234

PATIENT
  Age: 88 Year
  Sex: Female
  Weight: 70 kg

DRUGS (2)
  1. SUTENT [Suspect]
     Active Substance: SUNITINIB MALATE
     Indication: RENAL CELL CARCINOMA
     Dosage: 50 MG, CYCLIC (DAILY FOR 2 WEEKS ON)
     Route: 048
     Dates: start: 20130101
  2. SUTENT [Suspect]
     Active Substance: SUNITINIB MALATE
     Dosage: 37.5 MG, CYCLIC (DAILY FOR 14 DAYS ON 7)
     Route: 048
     Dates: start: 20160915

REACTIONS (5)
  - Diarrhoea [Unknown]
  - Blister [Unknown]
  - Pain in extremity [Unknown]
  - Abdominal discomfort [Unknown]
  - Fatigue [Unknown]
